FAERS Safety Report 18845095 (Version 1)
Quarter: 2021Q1

REPORT INFORMATION
  Report Type: Report from Study
  Country: US (occurrence: US)
  Receive Date: 20210203
  Receipt Date: 20210203
  Transmission Date: 20210419
  Serious: No
  Sender: FDA-Public Use
  Company Number: US-EXELIXIS-CABO-20030774

PATIENT
  Sex: Male

DRUGS (2)
  1. CABOMETYX [Suspect]
     Active Substance: CABOZANTINIB S-MALATE
     Indication: CHONDROSARCOMA
  2. CABOMETYX [Suspect]
     Active Substance: CABOZANTINIB S-MALATE
     Indication: BONE CANCER
     Dosage: 60 MG
     Dates: start: 20200529

REACTIONS (6)
  - Erythema [Unknown]
  - Scab [Unknown]
  - Blister [Unknown]
  - Off label use [Unknown]
  - Pain of skin [Unknown]
  - Diarrhoea [Recovered/Resolved]
